FAERS Safety Report 8417113-X (Version None)
Quarter: 2012Q2

REPORT INFORMATION
  Report Type: 
  Country: None (occurrence: None)
  Receive Date: 20120606
  Receipt Date: 20120524
  Transmission Date: 20120825
  Serious: Yes (Hospitalization)
  Sender: FDA-Public Use
  Company Number: DE-UCBSA-048631

PATIENT
  Sex: Female
  Weight: 95 kg

DRUGS (8)
  1. METHOTREXATE [Concomitant]
     Indication: RHEUMATOID ARTHRITIS
     Dates: start: 20090701
  2. CIMZIA [Suspect]
     Route: 058
     Dates: end: 20120224
  3. ZOSTEX [Concomitant]
     Indication: HERPES ZOSTER
     Dates: start: 20111101, end: 20111107
  4. TRAMADOL HCL [Concomitant]
     Indication: HERPES ZOSTER
     Dates: start: 20111101, end: 20111110
  5. DIPYRONE TAB [Concomitant]
     Indication: HERPES ZOSTER
     Dosage: SOLUTION/DROPS
     Dates: start: 20111101, end: 20111110
  6. LYRICA [Concomitant]
     Dates: start: 20111111, end: 20111201
  7. CIMZIA [Suspect]
     Indication: RHEUMATOID ARTHRITIS
     Route: 058
     Dates: start: 20110929, end: 20111025
  8. LYRICA [Concomitant]
     Indication: HERPES ZOSTER
     Dates: end: 20111110

REACTIONS (2)
  - HERPES ZOSTER [None]
  - PSORIASIS [None]
